FAERS Safety Report 9330297 (Version 1)
Quarter: 2013Q2

REPORT INFORMATION
  Report Type: Report from Study
  Country: AU (occurrence: AU)
  Receive Date: 20130605
  Receipt Date: 20130605
  Transmission Date: 20140414
  Serious: Yes (Death, Other)
  Sender: FDA-Public Use
  Company Number: AU-ROCHE-1230411

PATIENT
  Sex: Female

DRUGS (10)
  1. PERTUZUMAB [Suspect]
     Indication: PRODUCT USED FOR UNKNOWN INDICATION
     Route: 065
  2. HERCEPTIN [Suspect]
     Indication: PRODUCT USED FOR UNKNOWN INDICATION
     Route: 042
     Dates: start: 201005, end: 201101
  3. HERCEPTIN [Suspect]
     Route: 042
     Dates: start: 201101, end: 201107
  4. HERCEPTIN [Suspect]
     Route: 042
     Dates: start: 201107, end: 201109
  5. XELODA [Suspect]
     Indication: PRODUCT USED FOR UNKNOWN INDICATION
     Route: 065
     Dates: start: 201005, end: 201101
  6. XELODA [Suspect]
     Route: 065
     Dates: start: 201109, end: 201112
  7. TAXOTERE [Concomitant]
     Route: 065
  8. LAPATINIB [Concomitant]
     Route: 065
     Dates: start: 201109, end: 201112
  9. TRASTUZUMAB EMTANSINE [Concomitant]
     Route: 065
     Dates: start: 201112
  10. ABRAXANE [Concomitant]
     Route: 065
     Dates: start: 201101, end: 201107

REACTIONS (3)
  - Death [Fatal]
  - Metastases to lung [Unknown]
  - Disease progression [Unknown]
